FAERS Safety Report 16366762 (Version 1)
Quarter: 2019Q3

REPORT INFORMATION
  Report Type: Spontaneous
  Country: US (occurrence: US)
  Receive Date: 20190528
  Receipt Date: 20190528
  Transmission Date: 20191004
  Serious: Yes (Hospitalization)
  Sender: FDA-Public Use
  Company Number: None

PATIENT
  Age: 80 Year
  Sex: Female
  Weight: 72 kg

DRUGS (7)
  1. AMIPRILOSE HYDROCHLORIDE [Concomitant]
     Active Substance: AMIPRILOSE HYDROCHLORIDE
  2. OXYCODONE AND ACETAMINOPHEN [Suspect]
     Active Substance: ACETAMINOPHEN\OXYCODONE HYDROCHLORIDE
     Indication: BACK PAIN
     Dosage: ?          QUANTITY:2 TABLET(S);?
     Route: 048
  3. FLUTICASONE. [Concomitant]
     Active Substance: FLUTICASONE
  4. BUPROPION. [Concomitant]
     Active Substance: BUPROPION
  5. FUROSEMIDE OXYCODONE APAP [Concomitant]
  6. DIAZEPAN [Concomitant]
     Active Substance: DIAZEPAM
  7. ZOLPIDEM [Concomitant]
     Active Substance: ZOLPIDEM TARTRATE

REACTIONS (2)
  - Toxicity to various agents [None]
  - Analgesic drug level increased [None]

NARRATIVE: CASE EVENT DATE: 20190518
